FAERS Safety Report 10568836 (Version 1)
Quarter: 2014Q4

REPORT INFORMATION
  Report Type: Spontaneous
  Country: US (occurrence: US)
  Receive Date: 20141106
  Receipt Date: 20141106
  Transmission Date: 20150529
  Serious: Yes (Other)
  Sender: FDA-Public Use
  Company Number: US-BAYER-2014-160999

PATIENT
  Sex: Female
  Weight: 51.25 kg

DRUGS (3)
  1. VITAMIN D [Concomitant]
     Active Substance: CHOLECALCIFEROL
     Dosage: UNK, UNK
  2. MULTIVITAMIN [Concomitant]
     Active Substance: VITAMINS
     Dosage: UNK, UNK
  3. CITRACAL [Suspect]
     Active Substance: CALCIUM CITRATE
     Dosage: UNK, UNK
     Route: 048

REACTIONS (1)
  - Gastritis [Not Recovered/Not Resolved]

NARRATIVE: CASE EVENT DATE: 201404
